FAERS Safety Report 5606458-4 (Version None)
Quarter: 2008Q1

REPORT INFORMATION
  Report Type: 
  Country: None (occurrence: None)
  Receive Date: 20080129
  Receipt Date: 20080118
  Transmission Date: 20080703
  Serious: Yes (Other)
  Sender: FDA-Public Use
  Company Number: US-KINGPHARMUSA00001-K200800067

PATIENT

DRUGS (4)
  1. ALTACE [Suspect]
     Indication: HYPERTENSION
     Dosage: 2.5 MG, QD
     Route: 048
     Dates: start: 20060703, end: 20071205
  2. CLOPIDOGREL                        /01220702/ [Concomitant]
     Indication: CORONARY ARTERY BYPASS
     Dosage: 75 MG, UNK
     Route: 048
     Dates: start: 20060703
  3. BISOPROLOL FUMARATE [Concomitant]
     Indication: CORONARY ARTERY BYPASS
     Dosage: 5 MG, UNK
     Route: 048
     Dates: start: 20060703
  4. SIMVASTATIN [Concomitant]
     Indication: CORONARY ARTERY BYPASS
     Dosage: 20 MG, UNK
     Route: 048
     Dates: start: 20060705

REACTIONS (5)
  - ANHEDONIA [None]
  - DECREASED INTEREST [None]
  - DEPRESSED MOOD [None]
  - DEPRESSION [None]
  - LIBIDO DECREASED [None]
